FAERS Safety Report 18218415 (Version 1)
Quarter: 2020Q3

REPORT INFORMATION
  Report Type: Spontaneous
  Country: US (occurrence: US)
  Receive Date: 20200831
  Receipt Date: 20200831
  Transmission Date: 20201103
  Serious: No
  Sender: FDA-Public Use
  Company Number: None

PATIENT
  Age: 70 Year
  Sex: Male
  Weight: 118 kg

DRUGS (1)
  1. CODEINE (CODEINE S04 15MG TAB) [Suspect]
     Active Substance: CODEINE SULFATE

REACTIONS (2)
  - Seizure [None]
  - Dizziness [None]

NARRATIVE: CASE EVENT DATE: 20180506
